FAERS Safety Report 5892712-8 (Version None)
Quarter: 2008Q3

REPORT INFORMATION
  Report Type: 
  Country: None (occurrence: None)
  Receive Date: 20080923
  Receipt Date: 20080917
  Transmission Date: 20090109
  Serious: Yes (Disabling, Other)
  Sender: FDA-Public Use
  Company Number: PHHY2008IT09940

PATIENT
  Sex: Male

DRUGS (3)
  1. ZOMETA [Suspect]
     Indication: RENAL CANCER METASTATIC
     Dosage: 4 MG MONTHLY
     Route: 042
     Dates: start: 20050101, end: 20080514
  2. SUTENT [Concomitant]
  3. LANSOX [Concomitant]

REACTIONS (2)
  - OSTEONECROSIS [None]
  - PALPATORY FINDING ABNORMAL [None]
